FAERS Safety Report 4720908-7 (Version None)
Quarter: 2005Q3

REPORT INFORMATION
  Report Type: 
  Country: None (occurrence: None)
  Receive Date: 20050720
  Receipt Date: 20050714
  Transmission Date: 20060218
  Serious: Yes (Life-Threatening, Hospitalization, Other)
  Sender: FDA-Public Use
  Company Number: 200511010GDS

PATIENT
  Age: 68 Year
  Sex: Male

DRUGS (12)
  1. AVELOX [Suspect]
     Indication: BRONCHITIS CHRONIC
     Dosage: ORAL
     Route: 048
     Dates: start: 20050124, end: 20050201
  2. AUGMENTIN [Suspect]
     Dosage: ORAL
     Route: 048
     Dates: start: 20050101
  3. GLUCOPHAGE [Concomitant]
  4. MEDROL [Concomitant]
  5. LINCOCIN [Concomitant]
  6. SPIRIVA [Concomitant]
  7. SYMBICORT TURBUHALER [Concomitant]
  8. DUOVENT [Concomitant]
  9. ISILUNG [Concomitant]
  10. OMEPRAZOLE [Concomitant]
  11. SOTALOL HCL [Concomitant]
  12. CARDIOASPIRINE [Concomitant]

REACTIONS (14)
  - CARDIOGENIC SHOCK [None]
  - CYTOMEGALOVIRUS HEPATITIS [None]
  - ENCEPHALOPATHY [None]
  - EOSINOPHILIA [None]
  - HAEMODIALYSIS [None]
  - HAEMOLYSIS [None]
  - HAEMOLYTIC ANAEMIA [None]
  - HEPATITIS FULMINANT [None]
  - HEPATITIS TOXIC [None]
  - HEPATITIS VIRAL [None]
  - PSEUDOMONAL SEPSIS [None]
  - RENAL FAILURE [None]
  - RENAL TUBULAR NECROSIS [None]
  - THROMBOCYTOPENIA [None]
